FAERS Safety Report 9110673 (Version 1)
Quarter: 2013Q1

REPORT INFORMATION
  Report Type: Spontaneous
  Country: US (occurrence: US)
  Receive Date: 20130219
  Receipt Date: 20130219
  Transmission Date: 20140127
  Serious: No
  Sender: FDA-Public Use
  Company Number: US-BRISTOL-MYERS SQUIBB COMPANY-16969404

PATIENT
  Age: 61 Year
  Sex: Female
  Weight: 56.69 kg

DRUGS (2)
  1. ABATACEPT SUBQ INJECTION 125MG/ML [Suspect]
     Indication: RHEUMATOID ARTHRITIS
     Dosage: EVERY THURSDAY
     Route: 058
     Dates: start: 201202
  2. METHOTREXATE [Concomitant]

REACTIONS (5)
  - Irritability [Unknown]
  - Decreased appetite [Unknown]
  - Weight increased [Unknown]
  - Stomatitis [Recovering/Resolving]
  - Nausea [Recovering/Resolving]
